FAERS Safety Report 20684328 (Version 1)
Quarter: 2022Q2

REPORT INFORMATION
  Report Type: Spontaneous
  Country: DE (occurrence: DE)
  Receive Date: 20220407
  Receipt Date: 20220407
  Transmission Date: 20220721
  Serious: Yes (Other)
  Sender: FDA-Public Use
  Company Number: DE-drreddys-SPO/GER/21/0145163

PATIENT
  Age: 37 Year
  Sex: Male
  Weight: 110 kg

DRUGS (2)
  1. ENTECAVIR [Suspect]
     Active Substance: ENTECAVIR
     Indication: Hepatic cirrhosis
     Dosage: UNK
     Route: 048
     Dates: start: 20211022
  2. ENTECAVIR [Suspect]
     Active Substance: ENTECAVIR
     Indication: Hepatitis B

REACTIONS (4)
  - Nerve injury [Unknown]
  - Peripheral sensory neuropathy [Recovering/Resolving]
  - Gait inability [Unknown]
  - Gait disturbance [Unknown]

NARRATIVE: CASE EVENT DATE: 20211001
